FAERS Safety Report 8791879 (Version 3)
Quarter: 2012Q4

REPORT INFORMATION
  Report Type: 
  Country: FR (occurrence: FR)
  Receive Date: 20120918
  Receipt Date: 20121130
  Transmission Date: 20130627
  Serious: Yes (Death, Hospitalization)
  Sender: FDA-Public Use
  Company Number: FR-ELI_LILLY_AND_COMPANY-FR201209002656

PATIENT
  Age: 52 Year
  Sex: Male

DRUGS (6)
  1. ALIMTA [Suspect]
     Indication: SMALL CELL LUNG CANCER STAGE UNSPECIFIED
     Dosage: UNK
     Route: 042
     Dates: start: 20120228, end: 20120320
  2. CISPLATIN [Concomitant]
     Indication: SMALL CELL LUNG CANCER STAGE UNSPECIFIED
     Dosage: UNK
     Dates: start: 20110611, end: 20120320
  3. DOCETAXEL [Concomitant]
     Indication: SMALL CELL LUNG CANCER STAGE UNSPECIFIED
     Dosage: UNK
     Dates: start: 20110228, end: 20111108
  4. TARCEVA [Concomitant]
     Dosage: 150 mg, qd
     Dates: start: 20120609, end: 20120823
  5. VITAMIN B1 AND B6 [Concomitant]
     Indication: SUPPLEMENTATION THERAPY
  6. MULTIVITAMINS [Concomitant]
     Indication: SUPPLEMENTATION THERAPY

REACTIONS (2)
  - Death [Fatal]
  - Neuropathy peripheral [Not Recovered/Not Resolved]
